FAERS Safety Report 6153472-9 (Version None)
Quarter: 2009Q2

REPORT INFORMATION
  Report Type: 
  Country: None (occurrence: None)
  Receive Date: 20090413
  Receipt Date: 20090403
  Transmission Date: 20091009
  Serious: Yes (Hospitalization)
  Sender: FDA-Public Use
  Company Number: US-CELGENEUS-163-21880-09031600

PATIENT
  Sex: Male
  Weight: 80 kg

DRUGS (20)
  1. REVLIMID [Suspect]
     Indication: MULTIPLE MYELOMA
     Route: 048
     Dates: start: 20081124, end: 20090322
  2. VELCADE [Suspect]
     Indication: MULTIPLE MYELOMA
     Route: 051
     Dates: start: 20081124, end: 20090322
  3. DEXAMETHASONE 4MG TAB [Suspect]
     Indication: MULTIPLE MYELOMA
     Route: 048
     Dates: start: 20081124, end: 20090322
  4. DOXIL [Suspect]
     Indication: MULTIPLE MYELOMA
     Route: 051
     Dates: start: 20081129, end: 20090322
  5. TRAMADOL [Concomitant]
     Route: 048
     Dates: start: 20090326
  6. FLAX SEED OIL [Concomitant]
     Indication: PROPHYLAXIS
     Route: 048
     Dates: start: 20081125
  7. ACYCLOVIR [Concomitant]
     Indication: PROPHYLAXIS
     Route: 048
     Dates: start: 20081106
  8. ASPIRIN [Concomitant]
     Route: 048
     Dates: start: 20081106
  9. ATENOLOL [Concomitant]
     Indication: HYPERTENSION
     Route: 048
     Dates: start: 20081030
  10. FISH OIL [Concomitant]
     Indication: PROPHYLAXIS
     Route: 048
     Dates: start: 20081125
  11. GLUCOPHAGE [Concomitant]
     Indication: DIABETES MELLITUS
     Route: 048
     Dates: start: 20081030
  12. GLYBURIDE [Concomitant]
     Indication: DIABETES MELLITUS
     Route: 048
     Dates: start: 20081105
  13. LISINOPRIL [Concomitant]
     Indication: HYPERTENSION
     Route: 048
     Dates: start: 20090223
  14. MYCELEX [Concomitant]
     Indication: CANDIDIASIS
     Route: 048
     Dates: start: 20081106
  15. OMEPRAZOLE [Concomitant]
     Indication: DRUG USE FOR UNKNOWN INDICATION
     Route: 048
     Dates: start: 20090316
  16. OXYCODONE HCL [Concomitant]
     Indication: BACK PAIN
     Route: 048
     Dates: start: 20081030
  17. PERIDEX [Concomitant]
     Indication: PROPHYLAXIS
     Route: 048
     Dates: start: 20081106
  18. VITAMIN B-12 [Concomitant]
     Indication: PROPHYLAXIS
     Route: 048
     Dates: start: 20090316
  19. VITAMIN E [Concomitant]
     Indication: PROPHYLAXIS
     Dosage: 400 UNITS
     Route: 048
     Dates: start: 20081125
  20. AMLODIPINE [Concomitant]
     Indication: HYPERTENSION
     Route: 048
     Dates: start: 20090316

REACTIONS (1)
  - ILEUS [None]
